FAERS Safety Report 6909672-0 (Version None)
Quarter: 2010Q3

REPORT INFORMATION
  Report Type: 
  Country: None (occurrence: None)
  Receive Date: 20100805
  Receipt Date: 20100729
  Transmission Date: 20110219
  Serious: Yes (Other)
  Sender: FDA-Public Use
  Company Number: GB-ABBOTT-10P-167-0660404-00

PATIENT
  Age: 70 Year
  Sex: Female

DRUGS (3)
  1. VALPROATE CHRONO TABLETS [Suspect]
     Indication: PRODUCT USED FOR UNKNOWN INDICATION
  2. CLOBAZAM [Suspect]
     Indication: PRODUCT USED FOR UNKNOWN INDICATION
  3. KEPPRA [Suspect]
     Indication: PRODUCT USED FOR UNKNOWN INDICATION

REACTIONS (1)
  - ENCEPHALITIS [None]
